FAERS Safety Report 8504972 (Version 3)
Quarter: 2016Q1

REPORT INFORMATION
  Report Type: Spontaneous
  Country: SE (occurrence: SE)
  Receive Date: 20120412
  Receipt Date: 20160203
  Transmission Date: 20160526
  Serious: Yes (Other)
  Sender: FDA-Public Use
  Company Number: SE-BRISTOL-MYERS SQUIBB COMPANY-16501553

PATIENT
  Sex: Male

DRUGS (1)
  1. ABILIFY [Suspect]
     Active Substance: ARIPIPRAZOLE
     Indication: DISSOCIATIVE DISORDER
     Dosage: UNK
     Route: 065
     Dates: end: 20070802

REACTIONS (2)
  - Schizophrenia [Unknown]
  - Off label use [Unknown]
